FAERS Safety Report 7025536-9 (Version None)
Quarter: 2010Q4

REPORT INFORMATION
  Report Type: 
  Country: None (occurrence: None)
  Receive Date: 20101003
  Receipt Date: 20100922
  Transmission Date: 20110411
  Serious: Yes (Hospitalization)
  Sender: FDA-Public Use
  Company Number: PHHY2010JP63915

PATIENT
  Age: 24 Year
  Sex: Female

DRUGS (6)
  1. CYCLOSPORINE [Suspect]
     Indication: HISTIOCYTOSIS HAEMATOPHAGIC
  2. DEXAMETHASONE [Concomitant]
     Indication: CHEMOTHERAPY
  3. ETOPOSIDE [Concomitant]
     Indication: CHEMOTHERAPY
  4. METHYLPREDNISOLONE [Concomitant]
  5. ACYCLOVIR [Concomitant]
  6. IMMUNE GLOBULIN INTRAVENOUS (HUMAN) [Concomitant]

REACTIONS (2)
  - DRUG EXPOSURE DURING PREGNANCY [None]
  - INTRA-UTERINE DEATH [None]
